FAERS Safety Report 8594871-5 (Version None)
Quarter: 2012Q3

REPORT INFORMATION
  Report Type: 
  Country: None (occurrence: None)
  Receive Date: 20120815
  Receipt Date: 20120802
  Transmission Date: 20120928
  Serious: Yes (Death)
  Sender: FDA-Public Use
  Company Number: JP-ASTELLAS-2012US006854

PATIENT

DRUGS (2)
  1. AMBISOME [Suspect]
     Indication: FUNGAL INFECTION
     Dosage: 2.5 MG/KG, UID/QD
     Route: 042
     Dates: start: 20120709, end: 20120716
  2. FUNGUARD [Concomitant]
     Indication: PRODUCT USED FOR UNKNOWN INDICATION
     Dosage: UNK
     Route: 065
     Dates: start: 20120717, end: 20120727

REACTIONS (1)
  - CONDITION AGGRAVATED [None]
